FAERS Safety Report 17416561 (Version 5)
Quarter: 2021Q1

REPORT INFORMATION
  Report Type: Spontaneous
  Country: US (occurrence: US)
  Receive Date: 20200213
  Receipt Date: 20210202
  Transmission Date: 20210419
  Serious: Yes (Death)
  Sender: FDA-Public Use
  Company Number: US-PFIZER INC-2019468860

PATIENT
  Age: 72 Year
  Sex: Male
  Weight: 121.99 kg

DRUGS (22)
  1. RETACRIT [Suspect]
     Active Substance: EPOETIN ALFA-EPBX
     Dosage: 20000 UNK, (20,000ML/UNITS)
  2. ENALAPRIL [Concomitant]
     Active Substance: ENALAPRIL
     Dosage: 40 MG, 1X/DAY
     Route: 048
  3. GABAPENTIN. [Concomitant]
     Active Substance: GABAPENTIN
     Dosage: 300 MG, 3X/DAY
     Route: 048
  4. RETACRIT [Suspect]
     Active Substance: EPOETIN ALFA-EPBX
     Dosage: 0.5 ML, MONTHLY
     Dates: start: 20200124
  5. DOCUSATE [Concomitant]
     Active Substance: DOCUSATE
     Indication: CONSTIPATION
     Dosage: 100 MG, AS NEEDED
     Route: 048
  6. RETACRIT [Suspect]
     Active Substance: EPOETIN ALFA-EPBX
     Dosage: 20000 IU, MONTHLY
     Route: 058
     Dates: start: 20191023
  7. RETACRIT [Suspect]
     Active Substance: EPOETIN ALFA-EPBX
     Dosage: 2 ML, 2X/WEEK (EVERY 2 WEEKS FOR 30 DAYS)
     Route: 058
  8. ASPIRIN. [Concomitant]
     Active Substance: ASPIRIN
     Dosage: 81 MG, 2X/DAY
     Route: 048
  9. ENALAPRIL [Concomitant]
     Active Substance: ENALAPRIL
     Dosage: 20 MG, 2X/DAY
     Route: 048
  10. PIOGLITAZONE. [Concomitant]
     Active Substance: PIOGLITAZONE
     Dosage: UNK (TAKE 0.5 TABLET BY ORAL ROUTE 2 TIMES A DAY)
     Route: 048
  11. RETACRIT [Suspect]
     Active Substance: EPOETIN ALFA-EPBX
     Indication: NEPHROGENIC ANAEMIA
     Dosage: 2 ML, MONTHLY
     Route: 058
  12. PIOGLITAZONE. [Concomitant]
     Active Substance: PIOGLITAZONE
     Dosage: UNK, 2X/DAY (0.5 TAB, ORAL, BID (TWICE A DAY)
     Route: 048
  13. TRAMADOL. [Concomitant]
     Active Substance: TRAMADOL
     Indication: PAIN
     Dosage: 50 MG, AS NEEDED ((50MG,1 CTAB, ORAL, Q6H (EVERY 6 HOURS) PRN (AS NEEDED)
     Route: 048
  14. GLIPIZIDE. [Concomitant]
     Active Substance: GLIPIZIDE
     Dosage: 20 MG, DAILY
     Route: 048
  15. LEVOTHYROXINE. [Concomitant]
     Active Substance: LEVOTHYROXINE
     Dosage: 75 UG, DAILY
     Route: 048
  16. OMEPRAZOLE. [Concomitant]
     Active Substance: OMEPRAZOLE
     Dosage: 40 MG, 1X/DAY (BEFORE A MEAL)
     Route: 048
  17. GLIPIZIDE. [Concomitant]
     Active Substance: GLIPIZIDE
     Dosage: 10 MG, 2X/DAY
     Route: 048
  18. SUCRALFATE. [Concomitant]
     Active Substance: SUCRALFATE
     Dosage: 1 G, 2X/DAY (ON AN EMPTY STOMACH)
     Route: 048
  19. FUROSEMIDE. [Concomitant]
     Active Substance: FUROSEMIDE
     Dosage: 40 MG, 1X/DAY
     Route: 048
  20. PROCRIT [Concomitant]
     Active Substance: ERYTHROPOIETIN
     Indication: NEPHROGENIC ANAEMIA
     Dosage: 20000 IU, WEEKLY
     Route: 058
     Dates: start: 20191023, end: 20200819
  21. ATORVASTATIN [Concomitant]
     Active Substance: ATORVASTATIN
     Dosage: 40 MG, 1X/DAY (EVERY BEDTIME)
     Route: 048
  22. TRAMADOL. [Concomitant]
     Active Substance: TRAMADOL
     Dosage: 100 MG, AS NEEDED (TAKE 2 TABLETS (100 MG) BY ORAL ROUTE EVERY 6 HOURS AS NEEDED)
     Route: 048

REACTIONS (2)
  - Death [Fatal]
  - Off label use [Unknown]

NARRATIVE: CASE EVENT DATE: 20200914
